FAERS Safety Report 5103851-3 (Version None)
Quarter: 2006Q3

REPORT INFORMATION
  Report Type: 
  Country: None (occurrence: None)
  Receive Date: 20060911
  Receipt Date: 20060830
  Transmission Date: 20061208
  Serious: Yes (Death)
  Sender: FDA-Public Use
  Company Number: 2006106183

PATIENT
  Age: 94 Year
  Sex: Female

DRUGS (1)
  1. SULPERAZON (SULBACTAM, CEFOPERAZONE) [Suspect]
     Indication: WHITE BLOOD CELL COUNT INCREASED
     Dosage: 1 GRAM, INTRAVENOUS
     Dates: start: 20060828, end: 20060828

REACTIONS (2)
  - CARDIAC FAILURE [None]
  - WHITE BLOOD CELL COUNT INCREASED [None]
